FAERS Safety Report 5119835-5 (Version None)
Quarter: 2006Q3

REPORT INFORMATION
  Report Type: 
  Country: None (occurrence: None)
  Receive Date: 20060928
  Receipt Date: 20060912
  Transmission Date: 20061208
  Serious: Yes (Other)
  Sender: FDA-Public Use
  Company Number: 2006SP003267

PATIENT
  Age: 5 Year
  Sex: Female

DRUGS (1)
  1. XOPENEX [Suspect]
     Indication: WHEEZING
     Dosage: 1.25 MG/3ML; 1X; INHALATION
     Route: 055
     Dates: start: 20030101, end: 20030101

REACTIONS (1)
  - CONVULSION [None]
